FAERS Safety Report 7819068-5 (Version None)
Quarter: 2011Q4

REPORT INFORMATION
  Report Type: 
  Country: None (occurrence: None)
  Receive Date: 20111018
  Receipt Date: 20111007
  Transmission Date: 20120403
  Serious: Yes (Other)
  Sender: FDA-Public Use
  Company Number: GB-ASTELLAS-2011EU001750

PATIENT
  Sex: Female
  Weight: 18 kg

DRUGS (7)
  1. EPADERM [Concomitant]
     Indication: DERMATITIS ATOPIC
     Dosage: UNK
     Route: 061
     Dates: start: 20050101
  2. TZ-3 [Concomitant]
     Indication: DERMATITIS ATOPIC
     Dosage: UNK
     Route: 061
     Dates: start: 20060314
  3. BETNEVATE [Concomitant]
     Indication: PRODUCT USED FOR UNKNOWN INDICATION
     Dosage: UNK
     Route: 061
     Dates: start: 20060616
  4. EUMOVATE [Concomitant]
     Indication: DERMATITIS ATOPIC
     Dosage: UNK
     Route: 061
     Dates: start: 20061016
  5. HYDROCORTISONE [Concomitant]
     Indication: DERMATITIS ATOPIC
     Dosage: 1 %, PRN
     Route: 061
     Dates: start: 20050101
  6. PIRITION [Concomitant]
     Indication: DERMATITIS ATOPIC
     Dosage: UNK
     Route: 048
     Dates: start: 20080421
  7. TACROLIMUS [Suspect]
     Indication: DERMATITIS ATOPIC
     Dosage: 0.03 %, BID
     Route: 061
     Dates: start: 20061113

REACTIONS (1)
  - LYMPHADENOPATHY [None]
